FAERS Safety Report 20534840 (Version 3)
Quarter: 2022Q2

REPORT INFORMATION
  Report Type: Spontaneous
  Country: FI (occurrence: FI)
  Receive Date: 20220302
  Receipt Date: 20220617
  Transmission Date: 20220721
  Serious: Yes (Other)
  Sender: FDA-Public Use
  Company Number: FI-JNJFOC-20220247050

PATIENT
  Sex: Female

DRUGS (8)
  1. DEXAMETHASONE [Suspect]
     Active Substance: DEXAMETHASONE
     Indication: Plasma cell myeloma
     Dosage: DARA- KRD REGIMEN - 3RD LINE STARTED ON 16/AUG/2021 AD STOPPED ON 16/OCT/2021
     Route: 065
     Dates: start: 20210816
  2. DEXAMETHASONE [Suspect]
     Active Substance: DEXAMETHASONE
     Route: 065
     Dates: start: 20211017
  3. LENALIDOMIDE [Suspect]
     Active Substance: LENALIDOMIDE
     Indication: Plasma cell myeloma
     Dosage: DARA- KRD REGIMEN - 3RD LINE STARTED ON 16/AUG/2021 AD STOPPED ON 16/OCT/2021
     Route: 065
     Dates: start: 20210816, end: 20211016
  4. POMALIDOMIDE [Suspect]
     Active Substance: POMALIDOMIDE
     Indication: Plasma cell myeloma
     Route: 065
     Dates: start: 20211017
  5. CARFILZOMIB [Suspect]
     Active Substance: CARFILZOMIB
     Indication: Plasma cell myeloma
     Dosage: DARA- KRD REGIMEN - 3RD LINE STARTED ON 16/AUG/2021 AD STOPPED ON 16/OCT/2021
     Route: 065
     Dates: start: 20210816
  6. CARFILZOMIB [Suspect]
     Active Substance: CARFILZOMIB
     Route: 065
     Dates: start: 20211017
  7. DARZALEX [Suspect]
     Active Substance: DARATUMUMAB
     Indication: Plasma cell myeloma
     Dosage: DARA- KRD REGIMEN - 3RD LINE STARTED ON 16/AUG/2021 AD STOPPED ON 16/OCT/2021
     Route: 065
     Dates: start: 20210816
  8. DARZALEX [Suspect]
     Active Substance: DARATUMUMAB
     Dosage: DARA- KPD REGIMEN - 4TH LINE STARTED ON  17-OCT-2021
     Route: 065
     Dates: start: 20211017

REACTIONS (1)
  - Plasma cell myeloma [Not Recovered/Not Resolved]
